FAERS Safety Report 8523142-8 (Version None)
Quarter: 2012Q3

REPORT INFORMATION
  Report Type: 
  Country: None (occurrence: None)
  Receive Date: 20120709
  Receipt Date: 20090727
  Transmission Date: 20120928
  Serious: No
  Sender: FDA-Public Use
  Company Number: 2009AP003096

PATIENT
  Age: 76 Year
  Sex: Male

DRUGS (3)
  1. DILTIAZEM [Concomitant]
  2. LISINOPRIL [Suspect]
     Indication: HYPERTENSION
     Dosage: 20 MG;QD;PO
     Route: 048
     Dates: end: 20090726
  3. DILTIAZEM HYDROCHLORIDE [Suspect]
     Indication: HYPERTENSION
     Dosage: 240 MG;QD;PO
     Route: 048
     Dates: start: 20090725

REACTIONS (4)
  - DRUG INTERACTION [None]
  - PRODUCT QUALITY ISSUE [None]
  - BLOOD PRESSURE INCREASED [None]
  - PRODUCT SUBSTITUTION ISSUE [None]
